FAERS Safety Report 9457697 (Version 1)
Quarter: 2013Q3

REPORT INFORMATION
  Report Type: Spontaneous
  Country: US (occurrence: US)
  Receive Date: 20130814
  Receipt Date: 20130814
  Transmission Date: 20140515
  Serious: Yes (Other)
  Sender: FDA-Public Use
  Company Number: US-JNJCP-30000166031

PATIENT
  Sex: Male
  Weight: 122 kg

DRUGS (4)
  1. NEUTROGENA BLACKHEAD ELIMINATING DAILY SCRUB [Suspect]
     Indication: ACNE
     Dosage: APPLIED LIBERALLY, TWICE PER DAY
     Route: 061
     Dates: end: 20130602
  2. BAYER ASPIRIN [Concomitant]
     Indication: ROUTINE HEALTH MAINTENANCE
     Dosage: ONE PER DAY
  3. FISH OIL [Concomitant]
     Indication: ROUTINE HEALTH MAINTENANCE
     Dosage: ONE PER DAY
  4. ONE A DAY MENS VITAMIN [Concomitant]
     Indication: ROUTINE HEALTH MAINTENANCE
     Dosage: ONE PER DAY

REACTIONS (4)
  - Application site swelling [Not Recovered/Not Resolved]
  - Application site pain [Not Recovered/Not Resolved]
  - Application site pustules [Not Recovered/Not Resolved]
  - Application site infection [Not Recovered/Not Resolved]
